FAERS Safety Report 24264229 (Version 1)
Quarter: 2024Q3

REPORT INFORMATION
  Report Type: Spontaneous
  Country: CA (occurrence: CA)
  Receive Date: 20240829
  Receipt Date: 20240829
  Transmission Date: 20241017
  Serious: Yes (Other)
  Sender: TEVA
  Company Number: CA-TEVA-VS-3236682

PATIENT
  Age: 18 Year
  Sex: Female
  Weight: 90 kg

DRUGS (4)
  1. METHOTREXATE SODIUM [Suspect]
     Active Substance: METHOTREXATE SODIUM
     Indication: Product used for unknown indication
     Route: 058
  2. NAPROXEN [Concomitant]
     Active Substance: NAPROXEN
     Indication: Product use in unapproved indication
     Route: 048
  3. ADVIL [Concomitant]
     Active Substance: IBUPROFEN\IBUPROFEN SODIUM
     Indication: Product use in unapproved indication
     Dosage: DOSE FORM: ADVIL (IBUPROFEN)
     Route: 048
  4. SEMAGLUTIDE [Concomitant]
     Active Substance: SEMAGLUTIDE
     Indication: Product use in unapproved indication
     Dosage: DOSE FORM: SOLUTION SUBCUTANEOUS
     Route: 065

REACTIONS (2)
  - Gastrointestinal disorder [Unknown]
  - Off label use [Unknown]
